FAERS Safety Report 7178176-5 (Version None)
Quarter: 2010Q4

REPORT INFORMATION
  Report Type: 
  Country: None (occurrence: None)
  Receive Date: 20101220
  Receipt Date: 20101210
  Transmission Date: 20110411
  Serious: Yes (Hospitalization)
  Sender: FDA-Public Use
  Company Number: FI-SANOFI-AVENTIS-2010SA075034

PATIENT
  Sex: Female

DRUGS (2)
  1. LANTUS [Suspect]
     Route: 058
     Dates: start: 20100101, end: 20100101
  2. INSULIN PEN NOS [Suspect]
     Dates: start: 20100101, end: 20100101

REACTIONS (3)
  - INTENTIONAL OVERDOSE [None]
  - SKIN DISORDER [None]
  - SUICIDE ATTEMPT [None]
